FAERS Safety Report 6973719-6 (Version None)
Quarter: 2010Q3

REPORT INFORMATION
  Report Type: 
  Country: None (occurrence: None)
  Receive Date: 20100909
  Receipt Date: 20100831
  Transmission Date: 20110219
  Serious: Yes (Other)
  Sender: FDA-Public Use
  Company Number: JP-PFIZER INC-2010097645

PATIENT
  Age: 93 Year
  Sex: Female

DRUGS (4)
  1. ALPRAZOLAM [Suspect]
     Dosage: UNK
     Route: 048
  2. MAGNESIUM OXIDE [Suspect]
     Dosage: UNK
     Route: 048
  3. ESTAZOLAM [Suspect]
     Dosage: UNK
     Route: 048
  4. ETIZOLAM [Suspect]
     Dosage: UNK
     Route: 048

REACTIONS (5)
  - AREFLEXIA [None]
  - ATRIOVENTRICULAR BLOCK [None]
  - DEPRESSED LEVEL OF CONSCIOUSNESS [None]
  - HYPERMAGNESAEMIA [None]
  - MYOCARDIAL ISCHAEMIA [None]
